FAERS Safety Report 6401107-X (Version None)
Quarter: 2009Q4

REPORT INFORMATION
  Report Type: 
  Country: None (occurrence: None)
  Receive Date: 20091009
  Receipt Date: 20091009
  Transmission Date: 20100525
  Serious: Yes (Death)
  Sender: FDA-Public Use
  Company Number: None

PATIENT
  Age: 52 Year
  Sex: Male
  Weight: 83.9154 kg

DRUGS (2)
  1. AMBIEN [Suspect]
     Indication: ANXIETY
     Dosage: 1 NIGHTLY
     Dates: start: 20090615, end: 20090818
  2. AMBIEN [Suspect]
     Indication: SLEEP DISORDER
     Dosage: 1 NIGHTLY
     Dates: start: 20090615, end: 20090818

REACTIONS (2)
  - COMPLETED SUICIDE [None]
  - GUN SHOT WOUND [None]
